FAERS Safety Report 9197172 (Version 1)
Quarter: 2013Q1

REPORT INFORMATION
  Report Type: Spontaneous
  Country: US (occurrence: None)
  Receive Date: 20120709
  Receipt Date: 20120709
  Transmission Date: 20140127
  Serious: No
  Sender: FDA-Public Use
  Company Number: 2012HGS-003554

PATIENT
  Age: 50 Year
  Sex: Female
  Weight: 66.68 kg

DRUGS (8)
  1. BENLYSTA [Suspect]
     Indication: SYSTEMIC LUPUS ERYTHEMATOSUS
     Dosage: 1 IN 28 D
     Route: 041
     Dates: start: 20120410
  2. PLAQUENIL (HYDROXY -?CHLOROQUINE?PHOSPHATE) (HYDROX -?YCHLOROQUINE?PHOSPHATE [Concomitant]
  3. COUMADIN (WARFARIN SODIUM) (WARFARIN SODIUM) [Concomitant]
  4. METHYLPREDNISOLONE (METHLPREDNISOLONE) (METHYLPREDNISOLONE) [Concomitant]
  5. TOPAMAX (TOPIRAMATE) (TOPIRAMATE) [Concomitant]
  6. PERCOCET (TYLOX/00446701/) (PARACETAMOL, OXYCODONE HYDROCHLORIDE, OXYCODONE TEREPHTHALATE) [Concomitant]
  7. PRILOSEC (OMEPRAZOLE) (OMEPRAZOLE) [Concomitant]
  8. LEVOFLOXACIN (LEVOFLOXACIN) (LEVOFLOXACIN) [Concomitant]

REACTIONS (5)
  - Arthralgia [None]
  - Pain [None]
  - Respiratory tract infection [None]
  - Productive cough [None]
  - Pyrexia [None]
